FAERS Safety Report 7636925-3 (Version None)
Quarter: 2011Q3

REPORT INFORMATION
  Report Type: 
  Country: None (occurrence: None)
  Receive Date: 20110722
  Receipt Date: 20110722
  Transmission Date: 20111222
  Serious: Yes (Disabling)
  Sender: FDA-Public Use
  Company Number: None

PATIENT
  Age: 27 Year
  Sex: Male
  Weight: 72.7 kg

DRUGS (1)
  1. PROPECIA [Suspect]
     Indication: ALOPECIA
     Dosage: 1 MG EACH DAY ORALLY
     Route: 048
     Dates: start: 20101110, end: 20101120

REACTIONS (19)
  - ANHEDONIA [None]
  - DISTURBANCE IN SEXUAL AROUSAL [None]
  - PANIC ATTACK [None]
  - NAUSEA [None]
  - EMOTIONAL POVERTY [None]
  - GENITAL HYPOAESTHESIA [None]
  - THROAT TIGHTNESS [None]
  - GROIN PAIN [None]
  - APATHY [None]
  - HEADACHE [None]
  - THINKING ABNORMAL [None]
  - FEELING ABNORMAL [None]
  - LIBIDO DECREASED [None]
  - LETHARGY [None]
  - ANXIETY [None]
  - DYSPHAGIA [None]
  - DYSPHEMIA [None]
  - ERECTILE DYSFUNCTION [None]
  - DISTURBANCE IN ATTENTION [None]
